FAERS Safety Report 24450713 (Version 2)
Quarter: 2025Q1

REPORT INFORMATION
  Report Type: Spontaneous
  Country: SA (occurrence: SA)
  Receive Date: 20241017
  Receipt Date: 20250224
  Transmission Date: 20250408
  Serious: Yes (Hospitalization)
  Sender: LEO PHARM
  Company Number: SA-LEO Pharma-374113

PATIENT
  Age: 60 Year
  Sex: Female

DRUGS (3)
  1. ADBRY [Suspect]
     Active Substance: TRALOKINUMAB-LDRM
     Indication: Dermatitis atopic
     Route: 058
     Dates: start: 20240911
  2. ADBRY [Suspect]
     Active Substance: TRALOKINUMAB-LDRM
     Indication: Dermatitis atopic
     Dosage: INITIAL DOSE OF 600 MG, FOLLOWED BY 300 MG ADMINISTERED EVERY TWO WEEKS.
     Route: 058
  3. XOLAIR [Concomitant]
     Active Substance: OMALIZUMAB
     Indication: Asthma

REACTIONS (1)
  - Tendon operation [Recovering/Resolving]

NARRATIVE: CASE EVENT DATE: 20240930
